FAERS Safety Report 12936871 (Version 2)
Quarter: 2016Q4

REPORT INFORMATION
  Report Type: Spontaneous
  Country: US (occurrence: US)
  Receive Date: 20161114
  Receipt Date: 20161209
  Transmission Date: 20170207
  Serious: Yes (Hospitalization, Other)
  Sender: FDA-Public Use
  Company Number: US-PFIZER INC-2016521083

PATIENT
  Age: 73 Year
  Sex: Male

DRUGS (3)
  1. HYDROMORPHONE HYDROCHLORIDE. [Suspect]
     Active Substance: HYDROMORPHONE HYDROCHLORIDE
     Indication: BACK PAIN
     Dosage: 4 MG, 4X/DAY, ^EVERY 6 HOURS^ (1 EVENING 6 HR)
     Dates: start: 20160919, end: 20160921
  2. HYDROMORPHONE HYDROCHLORIDE. [Suspect]
     Active Substance: HYDROMORPHONE HYDROCHLORIDE
     Indication: ARTHRALGIA
  3. SUTENT [Suspect]
     Active Substance: SUNITINIB MALATE
     Indication: RENAL CANCER
     Dosage: 50 MG, 1X/DAY [ONE PER DAY]
     Dates: start: 20160923, end: 20161010

REACTIONS (7)
  - Swelling [Recovered/Resolved]
  - Pleural effusion [Recovering/Resolving]
  - Cardiac disorder [Recovered/Resolved]
  - Atrial fibrillation [Recovered/Resolved]
  - Hallucination [Recovered/Resolved]
  - Dyspnoea [Recovered/Resolved]
  - Fluid retention [Recovered/Resolved]

NARRATIVE: CASE EVENT DATE: 201610
